FAERS Safety Report 25609517 (Version 1)
Quarter: 2025Q3

REPORT INFORMATION
  Report Type: Spontaneous
  Country: EU (occurrence: EU)
  Receive Date: 20250727
  Receipt Date: 20250727
  Transmission Date: 20251021
  Serious: Yes (Other)
  Sender: TEVA
  Company Number: None

PATIENT
  Age: 61 Year
  Sex: Female
  Weight: 73 kg

DRUGS (1)
  1. PACLITAXEL [Suspect]
     Active Substance: PACLITAXEL
     Indication: Cervix carcinoma
     Route: 042
     Dates: start: 20211006, end: 20211006

REACTIONS (4)
  - Chest discomfort [Recovering/Resolving]
  - Vomiting [Recovering/Resolving]
  - Erythema [Recovering/Resolving]
  - Cold sweat [Recovering/Resolving]

NARRATIVE: CASE EVENT DATE: 20211006
